FAERS Safety Report 6993870-4 (Version None)
Quarter: 2010Q3

REPORT INFORMATION
  Report Type: 
  Country: None (occurrence: None)
  Receive Date: 20100917
  Receipt Date: 20090720
  Transmission Date: 20110219
  Serious: Yes (Other)
  Sender: FDA-Public Use
  Company Number: US-ASTRAZENECA-2007UW05890

PATIENT
  Age: 14431 Day
  Sex: Male

DRUGS (7)
  1. SEROQUEL [Suspect]
     Route: 048
     Dates: start: 20040503
  2. CLONAZEPAM [Concomitant]
     Dates: start: 20040308
  3. LEXAPRO [Concomitant]
     Dates: start: 20040325
  4. DURAGESIC-100 [Concomitant]
     Dates: start: 20040405
  5. NEURONTIN [Concomitant]
     Dates: start: 20040408
  6. EFFEXOR XR [Concomitant]
     Dates: start: 20030503
  7. VYTORIN [Concomitant]
     Indication: BACK PAIN
     Dosage: 10/20 MG EVERY DAY
     Dates: start: 20060317

REACTIONS (3)
  - DIABETES MELLITUS [None]
  - KETOACIDOSIS [None]
  - PANCREATITIS [None]
